FAERS Safety Report 6245066-1 (Version None)
Quarter: 2009Q2

REPORT INFORMATION
  Report Type: 
  Country: None (occurrence: None)
  Receive Date: 20090625
  Receipt Date: 20090619
  Transmission Date: 20091009
  Serious: Yes (Hospitalization, Other)
  Sender: FDA-Public Use
  Company Number: CA-ELI_LILLY_AND_COMPANY-CA200906005034

PATIENT
  Age: 90 Year
  Sex: Female

DRUGS (8)
  1. FORTEO [Suspect]
     Indication: OSTEOPOROSIS
     Dosage: 20 UG, DAILY (1/D)
     Dates: start: 20090114
  2. EPREX [Concomitant]
  3. IMMUNE GLOBULIN INTRAVENOUS (HUMAN) [Concomitant]
     Dosage: UNK, MONTHLY (1/M)
  4. PRILOSEC [Concomitant]
  5. VITAMIN D [Concomitant]
  6. MIACALCIN [Concomitant]
  7. ROCALTROL [Concomitant]
  8. TYLENOL (CAPLET) [Concomitant]

REACTIONS (2)
  - MALIGNANT NEOPLASM PROGRESSION [None]
  - VULVAL CANCER [None]
